FAERS Safety Report 7228588-6 (Version None)
Quarter: 2011Q1

REPORT INFORMATION
  Report Type: 
  Country: None (occurrence: None)
  Receive Date: 20110117
  Receipt Date: 20110105
  Transmission Date: 20110831
  Serious: No
  Sender: FDA-Public Use
  Company Number: US-BIOGENIDEC-2010BI033928

PATIENT
  Sex: Female

DRUGS (1)
  1. TYSABRI [Suspect]
     Indication: MULTIPLE SCLEROSIS
     Route: 042
     Dates: start: 20080410

REACTIONS (7)
  - BACK INJURY [None]
  - ROAD TRAFFIC ACCIDENT [None]
  - BACK PAIN [None]
  - NECK INJURY [None]
  - BRONCHITIS [None]
  - OSTEOSCLEROSIS [None]
  - FATIGUE [None]
